FAERS Safety Report 9697459 (Version 3)
Quarter: 2013Q4

REPORT INFORMATION
  Report Type: Report from Study
  Country: DE (occurrence: DE)
  Receive Date: 20131120
  Receipt Date: 20131219
  Transmission Date: 20140711
  Serious: Yes (Hospitalization, Other)
  Sender: FDA-Public Use
  Company Number: PHHY2013DE131077

PATIENT
  Sex: Female
  Weight: 66 kg

DRUGS (8)
  1. AFINITOR [Suspect]
     Indication: BREAST CANCER METASTATIC
     Dosage: 10 MG, QD
     Route: 048
     Dates: start: 20130608, end: 20131110
  2. AFINITOR [Suspect]
     Dosage: UNK
     Dates: end: 20131203
  3. EXEMESTANE [Concomitant]
     Indication: BREAST CANCER METASTATIC
     Route: 048
     Dates: start: 201204, end: 201301
  4. EXEMESTANE [Concomitant]
     Dosage: 25 MG, QD
     Route: 048
     Dates: start: 20130608, end: 20131203
  5. CALCILAC [Concomitant]
     Dosage: 1 DF, QD
     Route: 048
     Dates: start: 20120208
  6. BROMAZEPAM [Concomitant]
     Dosage: 0.5 DF, DAILY
     Dates: start: 20120222
  7. AMLODIPINE [Concomitant]
     Dosage: 5 MG, QD
     Dates: start: 20120516
  8. RAMILICH [Concomitant]
     Dosage: 2.5 MG, QD
     Dates: start: 20120627

REACTIONS (9)
  - Pulmonary oedema [Recovered/Resolved]
  - Cardiac failure [Recovered/Resolved]
  - Left ventricular hypertrophy [Recovered/Resolved]
  - Mitral valve incompetence [Recovered/Resolved]
  - Aortic valve sclerosis [Recovered/Resolved]
  - Left atrial dilatation [Recovered/Resolved]
  - Lung disorder [Recovered/Resolved]
  - Tricuspid valve incompetence [Recovered/Resolved]
  - Dyspnoea [Unknown]
